FAERS Safety Report 7004670-3 (Version None)
Quarter: 2010Q3

REPORT INFORMATION
  Report Type: 
  Country: None (occurrence: None)
  Receive Date: 20100902
  Receipt Date: 20100429
  Transmission Date: 20110219
  Serious: Yes (Disabling, Other)
  Sender: FDA-Public Use
  Company Number: 232603USA

PATIENT
  Sex: Male

DRUGS (1)
  1. METOCLOPRAMIDE [Suspect]
     Dosage: 40 MG (40 MG,1 IN 1 D)
     Dates: start: 19940101, end: 20090201

REACTIONS (2)
  - TARDIVE DYSKINESIA [None]
  - TREMOR [None]
